FAERS Safety Report 7770346-8 (Version None)
Quarter: 2011Q3

REPORT INFORMATION
  Report Type: 
  Country: None (occurrence: None)
  Receive Date: 20110922
  Receipt Date: 20100819
  Transmission Date: 20111222
  Serious: No
  Sender: FDA-Public Use
  Company Number: US-ASTRAZENECA-2010SE30485

PATIENT
  Age: 23 Year
  Sex: Female
  Weight: 55.3 kg

DRUGS (2)
  1. SEROQUEL [Suspect]
     Indication: AUTISM
     Route: 048
     Dates: start: 20100521
  2. TOPROL-XL [Concomitant]

REACTIONS (6)
  - INSOMNIA [None]
  - AGITATION [None]
  - MYDRIASIS [None]
  - CLONUS [None]
  - LIP SWELLING [None]
  - PARKINSONIAN GAIT [None]
